FAERS Safety Report 21970639 (Version 1)
Quarter: 2023Q1

REPORT INFORMATION
  Report Type: Spontaneous
  Country: FR (occurrence: FR)
  Receive Date: 20230209
  Receipt Date: 20230209
  Transmission Date: 20230417
  Serious: Yes (Hospitalization)
  Sender: FDA-Public Use
  Company Number: FR-AFSSAPS-NC2023000062

PATIENT
  Age: 38 Year
  Sex: Female
  Weight: 56 kg

DRUGS (15)
  1. GEMCITABINE [Suspect]
     Active Substance: GEMCITABINE
     Indication: Breast cancer
     Dosage: 1600 MILLIGRAM, DAILY
     Route: 040
     Dates: start: 20220607, end: 20220607
  2. GEMCITABINE [Suspect]
     Active Substance: GEMCITABINE
     Dosage: 1280 MILLIGRAM, DAILY
     Route: 040
     Dates: start: 20220712, end: 20220712
  3. GEMCITABINE [Suspect]
     Active Substance: GEMCITABINE
     Dosage: 1620 MILLIGRAM, DAILY
     Route: 040
     Dates: start: 20220517, end: 20220517
  4. GEMCITABINE [Suspect]
     Active Substance: GEMCITABINE
     Dosage: 1620 MILLIGRAM, DAILY
     Route: 040
     Dates: start: 20220510, end: 20220510
  5. GEMCITABINE [Suspect]
     Active Substance: GEMCITABINE
     Dosage: 1600 MILLIGRAM, DAILY
     Route: 040
     Dates: start: 20220614, end: 20220614
  6. GEMCITABINE [Suspect]
     Active Substance: GEMCITABINE
     Dosage: 1280 MILLIGRAM, DAILY
     Route: 040
     Dates: start: 20220705, end: 20220705
  7. KEYTRUDA [Suspect]
     Active Substance: PEMBROLIZUMAB
     Indication: Breast cancer
     Dosage: 200 MILLIGRAM, DAILY
     Route: 040
     Dates: start: 20220607, end: 20220607
  8. KEYTRUDA [Suspect]
     Active Substance: PEMBROLIZUMAB
     Dosage: 200 MILLIGRAM, DAILY
     Route: 040
     Dates: start: 20220510, end: 20220510
  9. KEYTRUDA [Suspect]
     Active Substance: PEMBROLIZUMAB
     Dosage: 200 MILLIGRAM, DAILY
     Route: 040
     Dates: start: 20220705, end: 20220705
  10. CARBOPLATIN [Suspect]
     Active Substance: CARBOPLATIN
     Indication: Breast cancer
     Dosage: 284 MILLIGRAM, DAILY
     Route: 040
     Dates: start: 20220614, end: 20220614
  11. CARBOPLATIN [Suspect]
     Active Substance: CARBOPLATIN
     Dosage: 292 MILLIGRAM, DAILY
     Route: 040
     Dates: start: 20220517, end: 20220517
  12. CARBOPLATIN [Suspect]
     Active Substance: CARBOPLATIN
     Dosage: 284 MILLIGRAM, DAILY
     Route: 040
     Dates: start: 20220607, end: 20220607
  13. CARBOPLATIN [Suspect]
     Active Substance: CARBOPLATIN
     Dosage: 292 MILLIGRAM, DAILY
     Route: 040
     Dates: start: 20220510, end: 20220510
  14. CARBOPLATIN [Suspect]
     Active Substance: CARBOPLATIN
     Dosage: 298.5 MILLIGRAM, DAILY
     Route: 040
     Dates: start: 20220712, end: 20220712
  15. CARBOPLATIN [Suspect]
     Active Substance: CARBOPLATIN
     Dosage: 298.5 MILLIGRAM, DAILY
     Route: 040
     Dates: start: 20220705, end: 20220705

REACTIONS (1)
  - Pancytopenia [Recovered/Resolved]

NARRATIVE: CASE EVENT DATE: 20220627
